FAERS Safety Report 8198734 (Version 3)
Quarter: 2013Q3

REPORT INFORMATION
  Report Type: Report from Study
  Country: NL (occurrence: NL)
  Receive Date: 20111025
  Receipt Date: 20130903
  Transmission Date: 20140515
  Serious: Yes (Hospitalization)
  Sender: FDA-Public Use
  Company Number: PHHO2011NL17452

PATIENT
  Age: 75 Year
  Sex: Male
  Weight: 93 kg

DRUGS (5)
  1. PREDNISON [Suspect]
     Indication: CHRONIC OBSTRUCTIVE PULMONARY DISEASE
     Dosage: 30 MG, QD
     Dates: start: 2009, end: 20110927
  2. PREDNISON [Suspect]
     Dosage: 20 MG, QD
     Dates: start: 20111005
  3. PLACEBO [Suspect]
     Indication: CARDIOVASCULAR DISORDER
     Route: 048
     Dates: start: 20080521
  4. BURINEX [Concomitant]
     Indication: CARDIAC FAILURE
     Dosage: 4 MG, QD
     Dates: start: 2009, end: 20110927
  5. BURINEX [Concomitant]
     Dates: start: 20111005

REACTIONS (3)
  - Cardiac failure [Recovering/Resolving]
  - Chronic obstructive pulmonary disease [Recovering/Resolving]
  - Concomitant disease progression [Recovering/Resolving]
